FAERS Safety Report 10246955 (Version 1)
Quarter: 2014Q2

REPORT INFORMATION
  Report Type: Spontaneous
  Country: NO (occurrence: None)
  Receive Date: 20140617
  Receipt Date: 20140617
  Transmission Date: 20141212
  Serious: Yes (Other)
  Sender: FDA-Public Use
  Company Number: FK201402298

PATIENT
  Age: 33 Year
  Sex: Male

DRUGS (11)
  1. CYTARABINE [Suspect]
     Indication: PRECURSOR B-LYMPHOBLASTIC LYMPHOMA
     Route: 037
  2. METHOTREXATE [Suspect]
     Indication: PRECURSOR B-LYMPHOBLASTIC LYMPHOMA
     Route: 039
  3. G-CSF [Suspect]
     Indication: PRECURSOR B-LYMPHOBLASTIC LYMPHOMA
  4. PREDNISONE [Suspect]
     Indication: PRECURSOR B-LYMPHOBLASTIC LYMPHOMA
     Route: 039
  5. DOXORUBICIN [Suspect]
     Indication: PRECURSOR B-LYMPHOBLASTIC LYMPHOMA
     Route: 042
  6. CYCLOPHOSPHAMIDE [Suspect]
     Indication: PRECURSOR B-LYMPHOBLASTIC LYMPHOMA
     Route: 042
  7. VINCRISTINE SULFATE [Suspect]
     Indication: PRECURSOR B-LYMPHOBLASTIC LYMPHOMA
     Route: 048
  8. MERCAPTOPURINE [Suspect]
     Indication: PRECURSOR B-LYMPHOBLASTIC LYMPHOMA
     Route: 048
  9. THIOGUANINE [Suspect]
     Indication: PRECURSOR B-LYMPHOBLASTIC LYMPHOMA
     Route: 042
  10. DAUNORUBICIN [Suspect]
     Indication: PRECURSOR B-LYMPHOBLASTIC LYMPHOMA
  11. L-ASPARAGINASE [Suspect]
     Indication: PRECURSOR B-LYMPHOBLASTIC LYMPHOMA
     Route: 042

REACTIONS (3)
  - Febrile neutropenia [None]
  - Haematotoxicity [None]
  - Stem cell transplant [None]
